FAERS Safety Report 19371883 (Version 1)
Quarter: 2021Q2

REPORT INFORMATION
  Report Type: Report from Study
  Country: None (occurrence: US)
  Receive Date: 20210604
  Receipt Date: 20210604
  Transmission Date: 20210717
  Serious: Yes (Death)
  Sender: FDA-Public Use
  Company Number: US-ABBVIE-21K-163-3934218-00

PATIENT
  Age: 71 Year
  Sex: Female

DRUGS (2)
  1. VENCLEXTA [Suspect]
     Active Substance: VENETOCLAX
     Indication: PROPHYLACTIC CHEMOTHERAPY
  2. VENCLEXTA [Suspect]
     Active Substance: VENETOCLAX
     Indication: ACUTE MYELOID LEUKAEMIA
     Route: 048
     Dates: start: 20190213

REACTIONS (2)
  - Off label use [Unknown]
  - Death [Fatal]

NARRATIVE: CASE EVENT DATE: 20200314
